FAERS Safety Report 24335964 (Version 3)
Quarter: 2025Q1

REPORT INFORMATION
  Report Type: Spontaneous
  Country: IT (occurrence: IT)
  Receive Date: 20240919
  Receipt Date: 20250207
  Transmission Date: 20250408
  Serious: Yes (Other)
  Sender: ROCHE
  Company Number: IT-ROCHE-10000078245

PATIENT
  Age: 63 Year
  Sex: Female

DRUGS (3)
  1. FARICIMAB [Suspect]
     Active Substance: FARICIMAB
     Indication: Neovascular age-related macular degeneration
     Route: 050
     Dates: start: 202403, end: 20240528
  2. PREDNISONE [Concomitant]
     Active Substance: PREDNISONE
     Route: 048
  3. PREDNISONE [Concomitant]
     Active Substance: PREDNISONE
     Route: 048

REACTIONS (4)
  - Uveitis [Recovered/Resolved]
  - Papillitis [Recovered/Resolved]
  - Vitritis [Recovered/Resolved]
  - Eye inflammation [Recovered/Resolved]

NARRATIVE: CASE EVENT DATE: 20240529
